FAERS Safety Report 4681387-1 (Version None)
Quarter: 2005Q2

REPORT INFORMATION
  Report Type: 
  Country: None (occurrence: None)
  Receive Date: 20050603
  Receipt Date: 20050430
  Transmission Date: 20051028
  Serious: Yes (Hospitalization)
  Sender: FDA-Public Use
  Company Number: 2005AP03147

PATIENT
  Age: 76 Year
  Sex: Male

DRUGS (1)
  1. ZOLADEX [Suspect]
     Indication: PROSTATE CANCER
     Route: 058
     Dates: start: 20030201

REACTIONS (6)
  - CONTUSION [None]
  - FALL [None]
  - INSOMNIA [None]
  - RESTLESS LEGS SYNDROME [None]
  - THERAPY NON-RESPONDER [None]
  - WOUND [None]
